FAERS Safety Report 4369600-1 (Version None)
Quarter: 2004Q2

REPORT INFORMATION
  Report Type: 
  Country: None (occurrence: None)
  Receive Date: 20040603
  Receipt Date: 20040524
  Transmission Date: 20050107
  Serious: Yes (Other)
  Sender: FDA-Public Use
  Company Number: AU-BRISTOL-MYERS SQUIBB COMPANY-12594107

PATIENT
  Sex: Male

DRUGS (1)
  1. DICLOCIL INJ [Suspect]
     Route: 042

REACTIONS (1)
  - CHEST PAIN [None]
